FAERS Safety Report 6564997-6 (Version None)
Quarter: 2010Q1

REPORT INFORMATION
  Report Type: 
  Country: None (occurrence: None)
  Receive Date: 20100201
  Receipt Date: 20100120
  Transmission Date: 20100710
  Serious: Yes (Other)
  Sender: FDA-Public Use
  Company Number: GB-PFIZER INC-2009301222

PATIENT
  Age: 22 Year
  Sex: Male
  Weight: 70 kg

DRUGS (10)
  1. VFEND [Suspect]
     Indication: CANDIDIASIS
     Dosage: 420 MG, 2X/DAY
     Route: 042
     Dates: start: 20091115, end: 20091115
  2. VFEND [Suspect]
     Dosage: 280 MG, 2X/DAY
     Route: 042
     Dates: start: 20091116, end: 20091119
  3. OMEPRAZOLE [Concomitant]
     Indication: PROPHYLAXIS
     Dosage: 40 MG, 1X/DAY
     Route: 042
  4. PROPOFOL [Concomitant]
  5. CLEXANE [Concomitant]
  6. FRUSEMIDE [Concomitant]
  7. PARACETAMOL [Concomitant]
  8. MEROPENEM [Concomitant]
  9. VANCOMYCIN [Concomitant]
  10. CITALOPRAM [Concomitant]

REACTIONS (3)
  - HAEMATURIA [None]
  - HEPATOTOXICITY [None]
  - TRANSAMINASES INCREASED [None]
